FAERS Safety Report 12568496 (Version 1)
Quarter: 2016Q3

REPORT INFORMATION
  Report Type: Spontaneous
  Country: BR (occurrence: BR)
  Receive Date: 20160719
  Receipt Date: 20160719
  Transmission Date: 20161109
  Serious: Yes (Other)
  Sender: FDA-Public Use
  Company Number: BR-AMGEN-BRASP2013100423

PATIENT
  Sex: Female

DRUGS (1)
  1. ENBREL [Suspect]
     Active Substance: ETANERCEPT
     Indication: PRODUCT USED FOR UNKNOWN INDICATION
     Dosage: 50 MG, UNK
     Route: 058

REACTIONS (10)
  - Arthralgia [Unknown]
  - Productive cough [Unknown]
  - Finger deformity [Unknown]
  - Pyrexia [Unknown]
  - Headache [Unknown]
  - Sputum discoloured [Unknown]
  - Psoriatic arthropathy [Unknown]
  - Respiratory tract infection [Unknown]
  - Asthenia [Unknown]
  - Injection site discomfort [Unknown]
